FAERS Safety Report 20423600 (Version 2)
Quarter: 2022Q1

REPORT INFORMATION
  Report Type: Spontaneous
  Country: US (occurrence: US)
  Receive Date: 20220203
  Receipt Date: 20220215
  Transmission Date: 20220424
  Serious: Yes (Other)
  Sender: FDA-Public Use
  Company Number: US-TEVA-2022-US-2003261

PATIENT
  Age: 48 Year
  Sex: Female

DRUGS (9)
  1. MYCOPHENOLATE MOFETIL [Suspect]
     Active Substance: MYCOPHENOLATE MOFETIL
     Indication: Dermatitis allergic
     Route: 048
  2. BETAMETHASONE [Suspect]
     Active Substance: BETAMETHASONE
     Indication: Dermatitis allergic
     Route: 061
  3. DUPILUMAB [Suspect]
     Active Substance: DUPILUMAB
     Indication: Dermatitis allergic
     Dosage: 300 MG ONCE IN EVERY 2 WEEKS
     Route: 065
  4. DUPILUMAB [Suspect]
     Active Substance: DUPILUMAB
     Dosage: 200 MG ONCE IN EVERY 2 WEEKS
     Route: 065
  5. TACROLIMUS [Suspect]
     Active Substance: TACROLIMUS
     Indication: Dermatitis allergic
     Route: 061
  6. PREDNISONE [Concomitant]
     Active Substance: PREDNISONE
     Indication: Dermatitis allergic
     Route: 065
  7. CALAMINE [Concomitant]
     Active Substance: CALAMINE\FERRIC OXIDE RED\ZINC OXIDE
     Indication: Dermatitis allergic
     Dosage: LOTION
     Route: 061
  8. NEOSPORIN [Concomitant]
     Active Substance: BACITRACIN ZINC\NEOMYCIN SULFATE\POLYMYXIN B SULFATE
     Indication: Dermatitis allergic
     Route: 065
  9. MUPIROCIN [Concomitant]
     Active Substance: MUPIROCIN
     Indication: Dermatitis allergic
     Route: 065

REACTIONS (4)
  - Headache [Unknown]
  - Treatment failure [Unknown]
  - Rash [Unknown]
  - Off label use [Unknown]
